FAERS Safety Report 15771982 (Version 1)
Quarter: 2018Q4

REPORT INFORMATION
  Report Type: Spontaneous
  Country: GB (occurrence: GB)
  Receive Date: 20181228
  Receipt Date: 20181228
  Transmission Date: 20190205
  Serious: Yes (Life-Threatening)
  Sender: FDA-Public Use
  Company Number: GB-GUERBET-GB-20180199

PATIENT
  Age: 80 Year
  Sex: Female

DRUGS (2)
  1. OPTIRAY [Suspect]
     Active Substance: IOVERSOL
     Indication: COMPUTERISED TOMOGRAM
     Route: 042
     Dates: start: 20181127, end: 20181127
  2. OPTIRAY [Suspect]
     Active Substance: IOVERSOL
     Route: 042
     Dates: start: 20181127, end: 20181127

REACTIONS (4)
  - Erythema [Unknown]
  - Wheezing [Unknown]
  - Iodine allergy [Recovering/Resolving]
  - Dyspnoea [Unknown]

NARRATIVE: CASE EVENT DATE: 20181127
